FAERS Safety Report 22337007 (Version 1)
Quarter: 2023Q2

REPORT INFORMATION
  Report Type: Spontaneous
  Country: LU (occurrence: LU)
  Receive Date: 20230518
  Receipt Date: 20230518
  Transmission Date: 20230721
  Serious: Yes (Hospitalization)
  Sender: FDA-Public Use
  Company Number: None

PATIENT
  Age: 54 Year
  Sex: Female
  Weight: 70.1 kg

DRUGS (5)
  1. OXALIPLATIN [Suspect]
     Active Substance: OXALIPLATIN
     Indication: Colon cancer
     Dosage: SECOND CYCLE, FULL DOSE OF OXALIPLATIN
     Route: 065
     Dates: start: 20230424, end: 20230424
  2. DEXAMETHASONE [Concomitant]
     Active Substance: DEXAMETHASONE
     Indication: Premedication
     Route: 065
     Dates: start: 20230424, end: 20230424
  3. EMEND [Concomitant]
     Active Substance: APREPITANT
     Indication: Premedication
     Route: 065
     Dates: start: 20230424, end: 20230424
  4. XELODA [Concomitant]
     Active Substance: CAPECITABINE
     Indication: Colon cancer
     Route: 065
     Dates: start: 20230424, end: 20230424
  5. ONDANSETRON [Concomitant]
     Active Substance: ONDANSETRON
     Indication: Premedication
     Route: 065
     Dates: start: 20230424, end: 20230424

REACTIONS (4)
  - Upper airway obstruction [Recovered/Resolved]
  - Tremor [Recovering/Resolving]
  - Pain in extremity [Recovering/Resolving]
  - Tachycardia [Recovering/Resolving]

NARRATIVE: CASE EVENT DATE: 20230424
